FAERS Safety Report 5727410-4 (Version None)
Quarter: 2008Q2

REPORT INFORMATION
  Report Type: 
  Country: None (occurrence: None)
  Receive Date: 20080505
  Receipt Date: 20080417
  Transmission Date: 20081010
  Serious: Yes (Life-Threatening, Hospitalization, Other)
  Sender: FDA-Public Use
  Company Number: CA-BAYER-200811642BCC

PATIENT
  Age: 49 Year
  Sex: Female

DRUGS (1)
  1. ACETYLSALICYLIC ACID SRT [Suspect]
     Indication: PROPHYLAXIS
     Dosage: TOTAL DAILY DOSE: 1 DF

REACTIONS (5)
  - DIEULAFOY'S VASCULAR MALFORMATION [None]
  - GASTRITIS EROSIVE [None]
  - HAEMATEMESIS [None]
  - MUCOSAL HAEMORRHAGE [None]
  - SHOCK [None]
